FAERS Safety Report 17225336 (Version 3)
Quarter: 2020Q1

REPORT INFORMATION
  Report Type: Spontaneous
  Country: NL (occurrence: NL)
  Receive Date: 20200102
  Receipt Date: 20200206
  Transmission Date: 20200409
  Serious: Yes (Other)
  Sender: FDA-Public Use
  Company Number: NL-SA-2019SA361074

PATIENT
  Age: 24 Year
  Sex: Female

DRUGS (2)
  1. BACLOFEN. [Concomitant]
     Active Substance: BACLOFEN
     Indication: MUSCLE SPASTICITY
     Dosage: 5 MG, PRN
     Route: 065
     Dates: start: 201911
  2. LEMTRADA [Suspect]
     Active Substance: ALEMTUZUMAB
     Dosage: UNK UNK, UNK
     Route: 041
     Dates: start: 201901, end: 201901

REACTIONS (14)
  - Hyperhidrosis [Unknown]
  - Haematocrit decreased [Unknown]
  - Haemoglobin decreased [Unknown]
  - Neutrophil count decreased [Unknown]
  - Eosinophil count increased [Unknown]
  - Lymphocyte count decreased [Recovered/Resolved]
  - Human chorionic gonadotropin increased [Unknown]
  - White blood cell count decreased [Unknown]
  - Temperature intolerance [Unknown]
  - Blood thyroid stimulating hormone increased [Unknown]
  - Fatigue [Unknown]
  - C-reactive protein increased [Unknown]
  - Acute myeloid leukaemia [Unknown]
  - Eosinophil count decreased [Recovered/Resolved]

NARRATIVE: CASE EVENT DATE: 20190130
